FAERS Safety Report 9691325 (Version 3)
Quarter: 2014Q2

REPORT INFORMATION
  Report Type: Report from Study
  Country: US (occurrence: US)
  Receive Date: 20131115
  Receipt Date: 20140513
  Transmission Date: 20141212
  Serious: Yes (Other)
  Sender: FDA-Public Use
  Company Number: PHEH2013US023725

PATIENT
  Sex: Male

DRUGS (1)
  1. GLEEVEC [Suspect]
     Indication: CHRONIC MYELOID LEUKAEMIA
     Dosage: 400 MG, QD
     Route: 048

REACTIONS (8)
  - Eustachian tube disorder [Unknown]
  - Balance disorder [Unknown]
  - Fall [Unknown]
  - Toxicity to various agents [Unknown]
  - Ear infection [Unknown]
  - Renal injury [Unknown]
  - Migraine [Unknown]
  - Malaise [Unknown]
